FAERS Safety Report 10046670 (Version 3)
Quarter: 2014Q2

REPORT INFORMATION
  Report Type: Spontaneous
  Country: MX (occurrence: MX)
  Receive Date: 20140331
  Receipt Date: 20140409
  Transmission Date: 20141212
  Serious: Yes (Hospitalization, Other)
  Sender: FDA-Public Use
  Company Number: MX-ORION CORPORATION ORION PHARMA-ENTC2013-0274

PATIENT
  Sex: Male

DRUGS (8)
  1. STALEVO [Suspect]
     Indication: PARKINSON^S DISEASE
     Dosage: STRENGTH: 150/37.5/200 MG
     Route: 048
     Dates: start: 200903, end: 201312
  2. STALEVO [Suspect]
     Dosage: 50/UNK/UNK MG
     Route: 048
     Dates: start: 201312
  3. STALEVO [Suspect]
     Dosage: 100/UNK/UNK MG
     Route: 048
  4. ACILEK [Concomitant]
     Indication: PARKINSON^S DISEASE
     Route: 065
     Dates: start: 200903
  5. CRESTOR [Concomitant]
     Indication: CARDIAC DISORDER
     Route: 065
  6. TERMINSARTAN [Concomitant]
     Route: 065
  7. OMEPRAZOLE [Concomitant]
     Indication: GASTRIC DISORDER
     Route: 065
  8. AMLODIPINE [Concomitant]
     Indication: HYPERTENSION
     Route: 065

REACTIONS (13)
  - Drug ineffective [Not Recovered/Not Resolved]
  - Disease recurrence [Unknown]
  - Arrhythmia [Not Recovered/Not Resolved]
  - Respiratory disorder [Not Recovered/Not Resolved]
  - Depression [Not Recovered/Not Resolved]
  - General physical health deterioration [Not Recovered/Not Resolved]
  - Malaise [Unknown]
  - Spinal cord operation [Unknown]
  - Abasia [Unknown]
  - Incoherent [Not Recovered/Not Resolved]
  - Hallucination, visual [Not Recovered/Not Resolved]
  - Weight decreased [Not Recovered/Not Resolved]
  - Anxiety [Not Recovered/Not Resolved]
